FAERS Safety Report 5369164-X (Version None)
Quarter: 2007Q2

REPORT INFORMATION
  Report Type: 
  Country: None (occurrence: None)
  Receive Date: 20070625
  Receipt Date: 20070201
  Transmission Date: 20071010
  Serious: No
  Sender: FDA-Public Use
  Company Number: US-ASTRAZENECA-2007UW02209

PATIENT
  Age: 78 Year
  Sex: Female
  Weight: 76.2 kg

DRUGS (1)
  1. CRESTOR [Suspect]
     Indication: HYPERCHOLESTEROLAEMIA
     Route: 048
     Dates: start: 20060901

REACTIONS (2)
  - GLOSSODYNIA [None]
  - ORAL PAIN [None]
